FAERS Safety Report 26046580 (Version 1)
Quarter: 2025Q4

REPORT INFORMATION
  Report Type: Spontaneous
  Country: EU (occurrence: EU)
  Receive Date: 20251114
  Receipt Date: 20251114
  Transmission Date: 20260119
  Serious: Yes (Hospitalization, Congenital Anomaly)
  Sender: BAUSCH AND LOMB
  Company Number: EU-DR.FALKPHARMAGMBH-JO-216-25

PATIENT
  Sex: Male
  Weight: 3.095 kg

DRUGS (2)
  1. BUDESONIDE [Suspect]
     Active Substance: BUDESONIDE
     Indication: Eosinophilic oesophagitis
     Route: 064
     Dates: start: 202311, end: 202405
  2. ESCITALOPRAM [Suspect]
     Active Substance: ESCITALOPRAM OXALATE
     Indication: Mental disorder
     Route: 064
     Dates: start: 202311, end: 202405

REACTIONS (2)
  - Talipes [Recovered/Resolved]
  - Foetal exposure during pregnancy [Unknown]

NARRATIVE: CASE EVENT DATE: 20240801
